FAERS Safety Report 6590295-0 (Version None)
Quarter: 2010Q1

REPORT INFORMATION
  Report Type: 
  Country: None (occurrence: None)
  Receive Date: 20100212
  Receipt Date: 20100122
  Transmission Date: 20100710
  Serious: Yes (Other)
  Sender: FDA-Public Use
  Company Number: TRP_06751_2010

PATIENT
  Sex: Female
  Weight: 72.6209 kg

DRUGS (18)
  1. RIBASPHERE [Suspect]
     Indication: HEPATITIS C
     Dosage: (600 MG BID ORAL)
     Route: 048
     Dates: start: 20070101
  2. PEGASYS [Suspect]
     Indication: HEPATITIS C
     Dosage: (180 UG 1X/WEEK SUBCUTANEOUS); (180 UG 1X/WEEK SUBCUTANEOUS), (180 UG 1X/WEEK SUBCUTANEOUS)
     Route: 058
     Dates: start: 20041029, end: 20050701
  3. PEGASYS [Suspect]
     Indication: HEPATITIS C
     Dosage: (180 UG 1X/WEEK SUBCUTANEOUS); (180 UG 1X/WEEK SUBCUTANEOUS), (180 UG 1X/WEEK SUBCUTANEOUS)
     Route: 058
     Dates: start: 20070101
  4. PEGASYS [Suspect]
     Indication: HEPATITIS C
     Dosage: (180 UG 1X/WEEK SUBCUTANEOUS); (180 UG 1X/WEEK SUBCUTANEOUS), (180 UG 1X/WEEK SUBCUTANEOUS)
     Route: 058
     Dates: start: 20080316
  5. PEGASYS [Suspect]
  6. COPEGUS [Suspect]
     Indication: HEPATITIS C
     Dosage: (DF ORAL)
     Route: 048
     Dates: start: 20041029, end: 20050701
  7. RIBAVIRIN [Suspect]
     Indication: HEPATITIS C
     Dosage: (1200 MG)
     Dates: start: 20080316
  8. PEG-INTRON [Suspect]
     Indication: HEPATITIS C
     Dosage: (DF)
  9. ONDANSETRON [Concomitant]
  10. VENLAFAXINE HCL [Concomitant]
  11. LORAZEPAM [Concomitant]
  12. LECITHIN [Concomitant]
  13. CALCIUM [Concomitant]
  14. VITAMIN E /05494901/ [Concomitant]
  15. STROVITE [Concomitant]
  16. PEGFILGRASTIM [Concomitant]
  17. MAGNESIUM [Concomitant]
  18. URSODIOL [Concomitant]

REACTIONS (29)
  - ANAEMIA [None]
  - ARTHRALGIA [None]
  - CIRCADIAN RHYTHM SLEEP DISORDER [None]
  - CONTUSION [None]
  - DECREASED APPETITE [None]
  - DENTAL CARIES [None]
  - DEPRESSION [None]
  - DIARRHOEA [None]
  - DIZZINESS [None]
  - DRUG DOSE OMISSION [None]
  - EAR PAIN [None]
  - FACIAL PALSY [None]
  - FALL [None]
  - FATIGUE [None]
  - GINGIVAL DISORDER [None]
  - HEAD INJURY [None]
  - HEADACHE [None]
  - HYPERHIDROSIS [None]
  - INAPPROPRIATE SCHEDULE OF DRUG ADMINISTRATION [None]
  - INJURY [None]
  - INSOMNIA [None]
  - LIMB INJURY [None]
  - NASOPHARYNGITIS [None]
  - NAUSEA [None]
  - OROPHARYNGEAL PAIN [None]
  - TOOTH DISORDER [None]
  - VOMITING [None]
  - WEIGHT DECREASED [None]
  - WHITE BLOOD CELL COUNT DECREASED [None]
